FAERS Safety Report 4881636-0 (Version None)
Quarter: 2006Q1

REPORT INFORMATION
  Report Type: 
  Country: None (occurrence: None)
  Receive Date: 20060116
  Receipt Date: 20060105
  Transmission Date: 20060701
  Serious: Yes (Other)
  Sender: FDA-Public Use
  Company Number: PHMT2006CA00459

PATIENT
  Age: 19 Year
  Sex: Male

DRUGS (1)
  1. CLOZARIL [Suspect]
     Indication: SCHIZOPHRENIA
     Dates: start: 20051031, end: 20051211

REACTIONS (2)
  - CHEST PAIN [None]
  - CONDUCTION DISORDER [None]
